FAERS Safety Report 9560070 (Version 1)
Quarter: 2013Q3

REPORT INFORMATION
  Report Type: Spontaneous
  Country: US (occurrence: US)
  Receive Date: 20130927
  Receipt Date: 20130927
  Transmission Date: 20140515
  Serious: No
  Sender: FDA-Public Use
  Company Number: US-PFIZER INC-2013276840

PATIENT
  Age: 51 Year
  Sex: Female
  Weight: 71.66 kg

DRUGS (3)
  1. LYRICA [Suspect]
     Indication: NEURALGIA
     Dosage: 75 MG, 3X/DAY
     Dates: start: 201307, end: 20130923
  2. NABUMETONE [Concomitant]
     Indication: PAIN
     Dosage: 500 MG, 2X/DAY
  3. AMITRIPTYLINE [Concomitant]
     Indication: PAIN IN EXTREMITY
     Dosage: SPLITTING THE TABLET OF 25MG, 1X/DAY

REACTIONS (2)
  - Neck pain [Recovered/Resolved]
  - Myalgia [Unknown]
